FAERS Safety Report 7806506-7 (Version None)
Quarter: 2011Q4

REPORT INFORMATION
  Report Type: 
  Country: None (occurrence: None)
  Receive Date: 20111011
  Receipt Date: 20111005
  Transmission Date: 20120403
  Serious: Yes (Hospitalization)
  Sender: FDA-Public Use
  Company Number: IE-AMGEN-IRLSP2011051574

PATIENT
  Sex: Female

DRUGS (7)
  1. RAMILO [Concomitant]
  2. KYTRIL [Concomitant]
  3. ANTINEOPLASTIC AGENTS [Concomitant]
     Indication: BREAST CANCER
  4. NEULASTA [Suspect]
     Indication: CHEMOTHERAPY
     Dosage: 6 MG, 2 TIMES/WK
     Route: 058
     Dates: start: 20110823
  5. DEXAMETHASONE [Concomitant]
  6. AMLID [Concomitant]
  7. EMEND                              /01627301/ [Concomitant]

REACTIONS (1)
  - NEUTROPENIA [None]
